FAERS Safety Report 9918672 (Version 1)
Quarter: 2014Q1

REPORT INFORMATION
  Report Type: Spontaneous
  Country: CO (occurrence: CO)
  Receive Date: 20140224
  Receipt Date: 20140224
  Transmission Date: 20141002
  Serious: Yes (Other)
  Sender: FDA-Public Use
  Company Number: CO-AMGEN-COLSP2014012570

PATIENT
  Age: 71 Year
  Sex: 0

DRUGS (4)
  1. ENBREL [Suspect]
     Indication: RHEUMATOID ARTHRITIS
     Dosage: 50 MG, 1X/DAY
     Route: 058
     Dates: start: 201303
  2. CALCITRIOL [Concomitant]
     Dosage: UNK UNK, UNK
  3. ALENDRONIC [Concomitant]
     Dosage: UNK UNK, UNK
  4. ARAVA [Concomitant]
     Dosage: UNK UNK, UNK

REACTIONS (7)
  - Rheumatoid arthritis [Not Recovered/Not Resolved]
  - Drug dose omission [Not Recovered/Not Resolved]
  - Swelling [Not Recovered/Not Resolved]
  - Arthralgia [Not Recovered/Not Resolved]
  - Erythema [Not Recovered/Not Resolved]
  - Joint swelling [Not Recovered/Not Resolved]
  - Pyrexia [Not Recovered/Not Resolved]
